FAERS Safety Report 5105269-6 (Version None)
Quarter: 2006Q3

REPORT INFORMATION
  Report Type: 
  Country: None (occurrence: None)
  Receive Date: 20060911
  Receipt Date: 20060825
  Transmission Date: 20061208
  Serious: Yes (Other)
  Sender: FDA-Public Use
  Company Number: 2006SP000721

PATIENT
  Age: 46 Year
  Sex: Male

DRUGS (2)
  1. PEGINTERFERON ALFA-2B (S-P) [Suspect]
     Indication: HEPATITIS C
     Dosage: 1.5 MCG/KG; QW; 0.75 MCG/KG; QW;
  2. RIBAVIRIN [Suspect]
     Indication: HEPATITIS C

REACTIONS (7)
  - ASCITES [None]
  - CHOLESTASIS [None]
  - ENCEPHALOPATHY [None]
  - HEPATIC CIRRHOSIS [None]
  - LEUKOPENIA [None]
  - LIVER TRANSPLANT [None]
  - THROMBOCYTOPENIA [None]
